FAERS Safety Report 9323069 (Version 1)
Quarter: 2013Q2

REPORT INFORMATION
  Report Type: Report from Study
  Country: BR (occurrence: BR)
  Receive Date: 20130603
  Receipt Date: 20130603
  Transmission Date: 20140414
  Serious: Yes (Hospitalization, Other)
  Sender: FDA-Public Use
  Company Number: PHHY2013BR054828

PATIENT
  Age: 79 Year
  Sex: Male

DRUGS (4)
  1. DIOVAN [Suspect]
     Indication: HYPERTENSION
     Dosage: 1 DF, (160 MG) PER DAY
  2. DIOVAN [Suspect]
     Dosage: 2 DF, (160 MG) PER DAY
  3. ZANIDIP [Suspect]
     Indication: HYPERTENSION
     Dosage: 1 DF, PER DAY
  4. ZANIDIP [Suspect]
     Dosage: 2 DF, PER DAY

REACTIONS (5)
  - Blood pressure inadequately controlled [Not Recovered/Not Resolved]
  - Prostate cancer [Not Recovered/Not Resolved]
  - Abasia [Not Recovered/Not Resolved]
  - Pain [Not Recovered/Not Resolved]
  - Malaise [Unknown]
